FAERS Safety Report 18012687 (Version 1)
Quarter: 2020Q3

REPORT INFORMATION
  Report Type: Spontaneous
  Country: US (occurrence: US)
  Receive Date: 20200710
  Receipt Date: 20200710
  Transmission Date: 20201103
  Serious: Yes (Other)
  Sender: FDA-Public Use
  Company Number: None

PATIENT
  Age: 46 Year
  Sex: Female
  Weight: 67.5 kg

DRUGS (10)
  1. VITAMIN B [Concomitant]
     Active Substance: VITAMIN B
  2. TYLENOL [Concomitant]
     Active Substance: ACETAMINOPHEN
  3. DAILY VITAMIN [Concomitant]
     Active Substance: VITAMINS
  4. ALEVE [Concomitant]
     Active Substance: NAPROXEN SODIUM
  5. SUDAFED [Concomitant]
     Active Substance: PSEUDOEPHEDRINE HYDROCHLORIDE
  6. BLUMEN ADVANCED HAND SANITIZER [Suspect]
     Active Substance: ALCOHOL
     Indication: INFECTION PROPHYLAXIS
     Dosage: ?          OTHER STRENGTH:70;OTHER ROUTE:APPLIED TO HANDS AS NEEDED?
     Dates: start: 20200605, end: 20200708
  7. VITAMIN C [Concomitant]
     Active Substance: ASCORBIC ACID
  8. IBUPROFEN. [Concomitant]
     Active Substance: IBUPROFEN
  9. CLARITIN [Concomitant]
     Active Substance: LORATADINE
  10. WELLBUTRIN [Concomitant]
     Active Substance: BUPROPION HYDROCHLORIDE

REACTIONS (6)
  - Vomiting [None]
  - Chromaturia [None]
  - Headache [None]
  - Gastrointestinal disorder [None]
  - Mucous stools [None]
  - Disorientation [None]

NARRATIVE: CASE EVENT DATE: 20200613
